FAERS Safety Report 9871210 (Version 1)
Quarter: 2014Q1

REPORT INFORMATION
  Report Type: Spontaneous
  Country: US (occurrence: None)
  Receive Date: 20140205
  Receipt Date: 20140205
  Transmission Date: 20141002
  Serious: Yes (Other)
  Sender: FDA-Public Use
  Company Number: None

PATIENT
  Age: 58 Year
  Sex: Female
  Weight: 120.2 kg

DRUGS (1)
  1. GAMUNEX C [Suspect]
     Indication: GUILLAIN-BARRE SYNDROME
     Dosage: 140 GRAMS?OVER 3 DAYS?INTRAMUSCULAR
     Route: 030
     Dates: start: 20140123, end: 20140125

REACTIONS (4)
  - Headache [None]
  - Diarrhoea [None]
  - Nausea [None]
  - Chills [None]
